FAERS Safety Report 18103701 (Version 1)
Quarter: 2020Q3

REPORT INFORMATION
  Report Type: Spontaneous
  Country: US (occurrence: US)
  Receive Date: 20200731
  Receipt Date: 20200731
  Transmission Date: 20201103
  Serious: Yes (Disabling)
  Sender: FDA-Public Use
  Company Number: None

PATIENT
  Age: 83 Year
  Sex: Female
  Weight: 119.25 kg

DRUGS (12)
  1. SIMVASTATIN. [Concomitant]
     Active Substance: SIMVASTATIN
  2. FUROSEMIDE. [Concomitant]
     Active Substance: FUROSEMIDE
  3. MELOXICAM. [Concomitant]
     Active Substance: MELOXICAM
  4. ZYRTEC [Concomitant]
     Active Substance: CETIRIZINE HYDROCHLORIDE
  5. LISINOPRIL. [Concomitant]
     Active Substance: LISINOPRIL
  6. LANSOPRAZOLE. [Concomitant]
     Active Substance: LANSOPRAZOLE
  7. ROPINIROLE. [Concomitant]
     Active Substance: ROPINIROLE
  8. GLIMEPRIDE [Concomitant]
     Active Substance: GLIMEPIRIDE
  9. VITAMIN D3 [Concomitant]
     Active Substance: CHOLECALCIFEROL
  10. FLONASE [Concomitant]
     Active Substance: FLUTICASONE PROPIONATE
  11. METOPROLOL TARTRATE. [Concomitant]
     Active Substance: METOPROLOL TARTRATE
  12. METFORMIN HYDROCHLORIDE TABLETS,USP 500 MG [Suspect]
     Active Substance: METFORMIN HYDROCHLORIDE
     Indication: DIABETES MELLITUS
     Dosage: ?          QUANTITY:180 TABLET(S);?
     Route: 048
     Dates: start: 20200304, end: 20200415

REACTIONS (2)
  - Recalled product administered [None]
  - Diarrhoea [None]

NARRATIVE: CASE EVENT DATE: 20200401
